FAERS Safety Report 8257272-5 (Version None)
Quarter: 2012Q1

REPORT INFORMATION
  Report Type: 
  Country: None (occurrence: None)
  Receive Date: 20120330
  Receipt Date: 20120320
  Transmission Date: 20120608
  Serious: Yes (Hospitalization)
  Sender: FDA-Public Use
  Company Number: UCM201203-000035

PATIENT
  Age: 70 Year
  Sex: Female

DRUGS (6)
  1. BISOPROLOL FUMARATE [Suspect]
  2. PHENPROCOUMONE [Suspect]
     Indication: AORTIC VALVE REPLACEMENT
  3. AMIODARONE HCL [Suspect]
     Indication: AORTIC VALVE REPLACEMENT
  4. TORSEMIDE [Suspect]
     Indication: AORTIC VALVE REPLACEMENT
  5. LOSARTAN POTASSIUM [Suspect]
     Indication: AORTIC VALVE REPLACEMENT
  6. ACETYLSALICYLIC ACID SRT [Suspect]
     Indication: AORTIC VALVE REPLACEMENT

REACTIONS (1)
  - CUTANEOUS LUPUS ERYTHEMATOSUS [None]
